FAERS Safety Report 5932272-6 (Version None)
Quarter: 2008Q4

REPORT INFORMATION
  Report Type: 
  Country: None (occurrence: None)
  Receive Date: 20081028
  Receipt Date: 20081023
  Transmission Date: 20090506
  Serious: Yes (Other)
  Sender: FDA-Public Use
  Company Number: FR-WYE-G02423908

PATIENT
  Age: 44 Year
  Sex: Female

DRUGS (3)
  1. TORISEL [Suspect]
     Indication: RENAL CANCER METASTATIC
     Dosage: UNKNOWN
     Route: 042
     Dates: start: 20081001, end: 20081001
  2. RANITIDINE HCL [Concomitant]
     Indication: PREMEDICATION
     Dosage: UNKNOWN
     Dates: start: 20081001
  3. POLARAMINE [Concomitant]
     Indication: PREMEDICATION
     Dosage: UNKNOWN
     Dates: start: 20081001

REACTIONS (2)
  - ANAPHYLACTIC SHOCK [None]
  - FACIAL PALSY [None]
